FAERS Safety Report 12162737 (Version 1)
Quarter: 2016Q1

REPORT INFORMATION
  Report Type: Spontaneous
  Country: US (occurrence: None)
  Receive Date: 20160308
  Receipt Date: 20160308
  Transmission Date: 20160526
  Serious: Yes (Hospitalization)
  Sender: FDA-Public Use
  Company Number: None

PATIENT
  Age: 72 Year
  Sex: Male
  Weight: 116 kg

DRUGS (10)
  1. ECOTRIN [Suspect]
     Active Substance: ASPIRIN
     Indication: OSTEOARTHRITIS
     Dosage: 50 MG, BID, PRN, PO
     Route: 048
  2. PROBIOTIC [Concomitant]
     Active Substance: PROBIOTICS NOS
  3. WARFARIN [Suspect]
     Active Substance: WARFARIN
     Dosage: 1 MG, 2 MG, MWPS. TTHSUN PO
     Route: 048
  4. LYPOIC ACID [Concomitant]
  5. PRINIVIL [Concomitant]
     Active Substance: LISINOPRIL
  6. MEVACOR [Concomitant]
     Active Substance: LOVASTATIN
  7. ZYLOPRIM [Concomitant]
     Active Substance: ALLOPURINOL
  8. COQ10 [Concomitant]
     Active Substance: UBIDECARENONE
  9. LASIX [Concomitant]
     Active Substance: FUROSEMIDE
  10. SYNTHROID [Concomitant]
     Active Substance: LEVOTHYROXINE SODIUM

REACTIONS (1)
  - Diverticulum intestinal haemorrhagic [None]

NARRATIVE: CASE EVENT DATE: 20151003
